FAERS Safety Report 10249028 (Version 1)
Quarter: 2014Q2

REPORT INFORMATION
  Report Type: Spontaneous
  Country: US (occurrence: None)
  Receive Date: 20140618
  Receipt Date: 20140618
  Transmission Date: 20141212
  Serious: Yes (Hospitalization)
  Sender: FDA-Public Use
  Company Number: None

PATIENT
  Age: 50 Year
  Sex: Male
  Weight: 81.8 kg

DRUGS (2)
  1. INTRON-A (INTERFERON ALFA-2B) [Suspect]
     Dates: start: 20140609, end: 20140612
  2. LISINOPRIL [Concomitant]

REACTIONS (4)
  - Loss of consciousness [None]
  - Hypotension [None]
  - Neutropenia [None]
  - White blood cell count decreased [None]
